FAERS Safety Report 4726541-5 (Version None)
Quarter: 2005Q3

REPORT INFORMATION
  Report Type: 
  Country: None (occurrence: None)
  Receive Date: 20050727
  Receipt Date: 20050117
  Transmission Date: 20060218
  Serious: Yes (Hospitalization, Other)
  Sender: FDA-Public Use
  Company Number: US-MERCK-0501USA02664

PATIENT
  Age: 42 Year
  Sex: Male
  Weight: 59 kg

DRUGS (14)
  1. VIOXX [Suspect]
     Indication: ARTHRALGIA
     Route: 048
     Dates: start: 20001116, end: 20011129
  2. VIOXX [Suspect]
     Route: 048
     Dates: start: 20001116, end: 20011129
  3. CLARITIN [Concomitant]
     Route: 065
  4. ADALAT [Concomitant]
     Route: 065
  5. OXYCONTIN [Concomitant]
     Route: 065
  6. PERCODAN [Concomitant]
     Route: 065
  7. NORTRIPTYLINE [Concomitant]
     Route: 065
  8. AMOXICILLIN [Concomitant]
     Route: 065
  9. ZESTRIL [Concomitant]
     Route: 065
  10. INDOCIN [Concomitant]
     Route: 048
  11. HUMALOG [Concomitant]
     Route: 065
  12. LANTUS [Concomitant]
     Route: 065
  13. ERYTHROMYCIN [Concomitant]
     Route: 065
  14. PHENERGAN [Concomitant]
     Route: 065

REACTIONS (6)
  - CEREBROVASCULAR ACCIDENT [None]
  - CHRONIC OBSTRUCTIVE PULMONARY DISEASE [None]
  - DEEP VEIN THROMBOSIS [None]
  - DIABETIC NEUROPATHY [None]
  - RENAL FAILURE CHRONIC [None]
  - SHOULDER PAIN [None]
